FAERS Safety Report 19622685 (Version 1)
Quarter: 2021Q3

REPORT INFORMATION
  Report Type: Spontaneous
  Country: US (occurrence: US)
  Receive Date: 20210728
  Receipt Date: 20210728
  Transmission Date: 20211014
  Serious: No
  Sender: FDA-Public Use
  Company Number: US-GLAXOSMITHKLINE-USCH2021048264

PATIENT
  Age: 28 Year
  Sex: Female

DRUGS (2)
  1. EXCEDRIN MIGRAINE [Suspect]
     Active Substance: ACETAMINOPHEN\ASPIRIN\CAFFEINE
     Indication: MIGRAINE
     Dosage: 2 DF
     Dates: start: 20210610, end: 20210722
  2. PARODONTAX COMPLETE PROTECTION [Suspect]
     Active Substance: STANNOUS FLUORIDE
     Indication: DENTAL CLEANING
     Dosage: QD
     Dates: start: 20210709, end: 20210723

REACTIONS (8)
  - Abdominal distension [Unknown]
  - Mouth haemorrhage [Recovered/Resolved]
  - Abdominal pain upper [Unknown]
  - Drug ineffective [Unknown]
  - Stomatitis [Recovered/Resolved]
  - Illness [Unknown]
  - Bowel movement irregularity [Unknown]
  - Abdominal discomfort [Unknown]

NARRATIVE: CASE EVENT DATE: 20210610
